FAERS Safety Report 17668788 (Version 2)
Quarter: 2020Q2

REPORT INFORMATION
  Report Type: Spontaneous
  Country: GB (occurrence: GB)
  Receive Date: 20200415
  Receipt Date: 20200525
  Transmission Date: 20200713
  Serious: Yes (Hospitalization, Other)
  Sender: FDA-Public Use
  Company Number: GB-LUPIN PHARMACEUTICALS INC.-2020-01612

PATIENT
  Age: 40 Year
  Sex: Male

DRUGS (1)
  1. TRAMADOL HYDROCHLORIDE. [Suspect]
     Active Substance: TRAMADOL HYDROCHLORIDE
     Indication: PRODUCT USED FOR UNKNOWN INDICATION
     Dosage: 40 DOSAGE FORM (SUSTAINED-RELEASE TABLETS)
     Route: 065

REACTIONS (6)
  - Somnolence [Unknown]
  - Contusion [Unknown]
  - Erythema [Unknown]
  - Overdose [Unknown]
  - Rhabdomyolysis [Recovered/Resolved]
  - Loss of consciousness [Recovered/Resolved]
